FAERS Safety Report 20462532 (Version 3)
Quarter: 2022Q1

REPORT INFORMATION
  Report Type: Spontaneous
  Country: CA (occurrence: CA)
  Receive Date: 20220211
  Receipt Date: 20220303
  Transmission Date: 20220424
  Serious: Yes (Death, Hospitalization)
  Sender: FDA-Public Use
  Company Number: CA-NOVARTISPH-NVSC2021CA020994

PATIENT
  Sex: Male
  Weight: 105 kg

DRUGS (1)
  1. KYMRIAH [Suspect]
     Active Substance: TISAGENLECLEUCEL
     Indication: B-cell lymphoma
     Dosage: UNK (SINGLE INFUSION)
     Route: 042
     Dates: start: 20210104

REACTIONS (7)
  - Acute myeloid leukaemia [Fatal]
  - Second primary malignancy [Fatal]
  - Blood pressure decreased [Recovered/Resolved]
  - Cytokine release syndrome [Recovered/Resolved]
  - Headache [Recovered/Resolved]
  - Pyrexia [Recovered/Resolved]
  - Tachycardia [Recovered/Resolved]
